FAERS Safety Report 13586344 (Version 2)
Quarter: 2020Q4

REPORT INFORMATION
  Report Type: Report from Study
  Country: DE (occurrence: JP)
  Receive Date: 20170526
  Receipt Date: 20201118
  Transmission Date: 20210113
  Serious: Yes (Other)
  Sender: FDA-Public Use
  Company Number: JP-ELI_LILLY_AND_COMPANY-JP201705009497

PATIENT
  Age: 68 Year
  Sex: Male

DRUGS (1)
  1. CETUXIMAB. [Suspect]
     Active Substance: CETUXIMAB
     Indication: HEAD AND NECK CANCER
     Dosage: 250 MG/M2, WEEKLY (1/W)
     Route: 041
     Dates: start: 20150602, end: 20151127

REACTIONS (6)
  - Hypokalaemia [Recovered/Resolved]
  - Blood lactate dehydrogenase increased [Recovered/Resolved]
  - Hyponatraemia [Recovered/Resolved]
  - White blood cell count decreased [Recovered/Resolved]
  - Dermatitis acneiform [Recovered/Resolved]
  - Paronychia [Recovered/Resolved]

NARRATIVE: CASE EVENT DATE: 20150605
